FAERS Safety Report 5600959-0 (Version None)
Quarter: 2008Q1

REPORT INFORMATION
  Report Type: 
  Country: None (occurrence: None)
  Receive Date: 20080124
  Receipt Date: 20080116
  Transmission Date: 20080703
  Serious: Yes (Hospitalization)
  Sender: FDA-Public Use
  Company Number: PHEH2008US00882

PATIENT
  Age: 77 Year
  Sex: Female
  Weight: 58.956 kg

DRUGS (4)
  1. DECADRON [Concomitant]
     Indication: PANCYTOPENIA
     Dosage: 10 MG, UNK
  2. SODIUM CHLORIDE [Concomitant]
     Indication: RENAL FAILURE
  3. FUROSEMIDE [Concomitant]
  4. ZOMETA [Suspect]
     Indication: HYPERCALCAEMIA
     Dosage: 4 MG, ONCE/SINGLE
     Route: 042
     Dates: start: 20071126, end: 20071126

REACTIONS (5)
  - ENDOTRACHEAL INTUBATION [None]
  - GRAND MAL CONVULSION [None]
  - MUSCLE TWITCHING [None]
  - PSYCHOMOTOR SKILLS IMPAIRED [None]
  - SPEECH DISORDER [None]
